FAERS Safety Report 9956367 (Version 1)
Quarter: 2014Q1

REPORT INFORMATION
  Report Type: Spontaneous
  Country: US (occurrence: US)
  Receive Date: 20140304
  Receipt Date: 20140304
  Transmission Date: 20141002
  Serious: Yes (Other)
  Sender: FDA-Public Use
  Company Number: CHPA2014US003162

PATIENT
  Sex: 0

DRUGS (3)
  1. EXCEDRIN EXTRA STRENGTH [Suspect]
     Indication: HEADACHE
     Dosage: UNK
     Route: 065
     Dates: start: 1975, end: 2012
  2. EXCEDRIN MIGRAINE [Suspect]
     Indication: HEADACHE
     Dosage: UNK
     Route: 065
     Dates: start: 1975, end: 2012
  3. EXCEDRIN MIGRAINE [Suspect]
     Indication: OFF LABEL USE

REACTIONS (2)
  - Headache [Unknown]
  - Drug dependence [Unknown]
